FAERS Safety Report 5363211-7 (Version None)
Quarter: 2007Q2

REPORT INFORMATION
  Report Type: 
  Country: None (occurrence: None)
  Receive Date: 20070620
  Receipt Date: 20070613
  Transmission Date: 20071010
  Serious: Yes (Hospitalization, Other)
  Sender: FDA-Public Use
  Company Number: PHBS2007BR09360

PATIENT
  Age: 82 Year
  Sex: Male

DRUGS (1)
  1. TEGRETOL [Suspect]
     Indication: CONVULSION
     Dosage: 400 MG, BID
     Route: 048

REACTIONS (4)
  - CONVULSION [None]
  - DEMENTIA ALZHEIMER'S TYPE [None]
  - DIZZINESS [None]
  - PARKINSON'S DISEASE [None]
